FAERS Safety Report 8086853-7 (Version None)
Quarter: 2012Q1

REPORT INFORMATION
  Report Type: 
  Country: None (occurrence: None)
  Receive Date: 20120128
  Receipt Date: 20110517
  Transmission Date: 20120608
  Serious: No
  Sender: FDA-Public Use
  Company Number: US-ABBOTT-11P-163-0727127-00

PATIENT
  Sex: Male
  Weight: 81.72 kg

DRUGS (11)
  1. PREDNISONE TAB [Concomitant]
     Indication: PRODUCT USED FOR UNKNOWN INDICATION
  2. OXYCONTIN [Concomitant]
     Indication: ARTHRALGIA
  3. OXYCONTIN [Concomitant]
     Indication: NEUROPATHY PERIPHERAL
  4. HUMIRA [Suspect]
     Indication: PRODUCT USED FOR UNKNOWN INDICATION
     Dates: start: 20110504
  5. TRAVATAN [Concomitant]
     Indication: EYE INJURY
     Route: 047
  6. OXYCODONE HYDROCHLORIDE [Concomitant]
     Indication: NEUROPATHY PERIPHERAL
  7. ZOLOFT [Concomitant]
     Indication: PRODUCT USED FOR UNKNOWN INDICATION
  8. ADDERALL 5 [Concomitant]
     Indication: PRODUCT USED FOR UNKNOWN INDICATION
  9. OXYCODONE HYDROCHLORIDE [Concomitant]
     Indication: ARTHRALGIA
  10. CYMBALTA [Concomitant]
     Indication: PRODUCT USED FOR UNKNOWN INDICATION
  11. PLAQUENIL [Concomitant]
     Indication: PRODUCT USED FOR UNKNOWN INDICATION

REACTIONS (3)
  - LOCALISED INFECTION [None]
  - LACERATION [None]
  - TESTICULAR CYST [None]
